FAERS Safety Report 8839388 (Version 1)
Quarter: 2012Q4

REPORT INFORMATION
  Report Type: 
  Country: CL (occurrence: CL)
  Receive Date: 20121015
  Receipt Date: 20121015
  Transmission Date: 20130627
  Serious: Yes (Hospitalization)
  Sender: FDA-Public Use
  Company Number: CL-BAYER-2012-104153

PATIENT
  Age: 49 Year
  Sex: Male
  Weight: 90.4 kg

DRUGS (9)
  1. SORAFENIB (RAF KINASE INHIBITOR) [Suspect]
     Indication: METASTATIC RENAL CELL CARCINOMA
     Dosage: 400 mg, BID
     Route: 048
     Dates: start: 20101105, end: 20110128
  2. CODEINE PHOSPHATE HEMIHYDRATE [Concomitant]
     Indication: PAIN
     Dosage: UNK UNK, QD
     Route: 048
     Dates: start: 20101209
  3. PARACETAMOL [Concomitant]
     Indication: PAIN
     Dosage: UNK UNK, QD
     Route: 048
     Dates: start: 20101209
  4. LACTULOSE [Concomitant]
     Indication: CONSTIPATION PROPHYLAXIS
     Dosage: Daily dose 30 ml
     Route: 048
     Dates: start: 20101028
  5. OXYGEN [Concomitant]
     Dosage: UNK UNK, PRN
     Route: 045
     Dates: start: 20110102
  6. LOPERAMIDE [Concomitant]
     Indication: PROPHYLAXIS
     Dosage: 1 DF, QD
     Route: 048
     Dates: start: 20110107
  7. CHLORDIAZEPOXIDE [Concomitant]
     Indication: FLATULENCE
     Dosage: UNK
     Route: 048
     Dates: start: 20110109
  8. DIMETICONE [Concomitant]
     Indication: FLATULENCE
     Dosage: UNK
     Route: 048
     Dates: start: 20110109
  9. METOCLOPRAMIDE [Concomitant]
     Indication: FLATULENCE
     Dosage: UNK
     Route: 048
     Dates: start: 20110109

REACTIONS (1)
  - Pleural effusion [Recovered/Resolved with Sequelae]
